FAERS Safety Report 6262218-5 (Version None)
Quarter: 2009Q3

REPORT INFORMATION
  Report Type: 
  Country: None (occurrence: None)
  Receive Date: 20090708
  Receipt Date: 20090708
  Transmission Date: 20100115
  Serious: Yes (Disabling)
  Sender: FDA-Public Use
  Company Number: None

PATIENT
  Age: 49 Year
  Sex: Female
  Weight: 68.9467 kg

DRUGS (1)
  1. ZICAM SPRAY, GEL, SWABS [Suspect]
     Dosage: SPRAY IN NOSE WHEN NEEDED
     Dates: start: 19990101

REACTIONS (2)
  - HYPOSMIA [None]
  - PAROSMIA [None]
